FAERS Safety Report 18138821 (Version 1)
Quarter: 2020Q3

REPORT INFORMATION
  Report Type: Spontaneous
  Country: US (occurrence: GB)
  Receive Date: 20200812
  Receipt Date: 20200812
  Transmission Date: 20201103
  Serious: No
  Sender: FDA-Public Use
  Company Number: US-JNJFOC-20200800975

PATIENT
  Sex: Male
  Weight: 63.56 kg

DRUGS (1)
  1. MENS ROGAINE EXTRA STRENGTH [Suspect]
     Active Substance: MINOXIDIL
     Indication: PRODUCT USED FOR UNKNOWN INDICATION
     Dosage: DOSE: HALF CAPFUL?PRODUCT LAST ADMINISTERED ON 31?JUL?2020
     Route: 065
     Dates: start: 202003

REACTIONS (1)
  - Drug ineffective [Unknown]
